FAERS Safety Report 17898817 (Version 5)
Quarter: 2022Q2

REPORT INFORMATION
  Report Type: Report from Study
  Country: JP (occurrence: JP)
  Receive Date: 20200616
  Receipt Date: 20220420
  Transmission Date: 20220721
  Serious: Yes (Death, Hospitalization, Other)
  Sender: FDA-Public Use
  Company Number: JP-ALXN-A202008170AA

PATIENT
  Age: 64 Year
  Sex: Female
  Weight: 155 kg

DRUGS (7)
  1. SOLIRIS [Suspect]
     Active Substance: ECULIZUMAB
     Dosage: 1200 MG, Q2W
     Route: 042
     Dates: start: 20191226, end: 20200528
  2. SOLIRIS [Suspect]
     Active Substance: ECULIZUMAB
     Indication: Myasthenia gravis
     Dosage: 900 MG, QW
     Route: 042
     Dates: start: 20191128, end: 20191219
  3. MESTINON [Concomitant]
     Active Substance: PYRIDOSTIGMINE BROMIDE
     Indication: Myasthenia gravis
     Dosage: 60 MG, TID
     Route: 048
     Dates: start: 20100122
  4. NEORAL [Concomitant]
     Active Substance: CYCLOSPORINE
     Indication: Myasthenia gravis
     Dosage: 75 MG, BID
     Route: 048
     Dates: start: 20101106
  5. PREDONINE [Concomitant]
     Active Substance: PREDNISOLONE
     Dosage: 19 MG, QD
     Route: 048
     Dates: start: 20130816, end: 20190703
  6. PREDONINE [Concomitant]
     Active Substance: PREDNISOLONE
     Indication: Myasthenia gravis
     Dosage: 30 MG, QD
     Route: 048
     Dates: start: 20100611, end: 20130815
  7. PREDONINE [Concomitant]
     Active Substance: PREDNISOLONE
     Dosage: 30 MG, QD
     Route: 048
     Dates: start: 20190704, end: 20200814

REACTIONS (4)
  - Death [Fatal]
  - Asthma [Recovering/Resolving]
  - Pneumonia [Recovering/Resolving]
  - Drug ineffective [Unknown]

NARRATIVE: CASE EVENT DATE: 20200609
